FAERS Safety Report 18684829 (Version 1)
Quarter: 2020Q4

REPORT INFORMATION
  Report Type: Spontaneous
  Country: US (occurrence: US)
  Receive Date: 20201230
  Receipt Date: 20201230
  Transmission Date: 20210114
  Serious: Yes (Other)
  Sender: FDA-Public Use
  Company Number: US-PURDUE PHARMA-USA-2020-0157136

PATIENT
  Sex: Male

DRUGS (1)
  1. OXYCONTIN [Suspect]
     Active Substance: OXYCODONE HYDROCHLORIDE
     Indication: PAIN
     Dosage: 80 MG, TID ONE TABLET
     Route: 048

REACTIONS (8)
  - Obsessive thoughts [Unknown]
  - Depression [Unknown]
  - Syncope [Unknown]
  - Bronchitis [Unknown]
  - Palpitations [Recovered/Resolved]
  - Asthma [Unknown]
  - Atrioventricular block complete [Unknown]
  - Dyspnoea [Unknown]
